FAERS Safety Report 8861942 (Version 1)
Quarter: 2012Q4

REPORT INFORMATION
  Report Type: Spontaneous
  Country: BE (occurrence: None)
  Receive Date: 20121024
  Receipt Date: 20121024
  Transmission Date: 20130627
  Serious: Yes (Hospitalization, Disabling)
  Sender: FDA-Public Use
  Company Number: DSA_60286_2012

PATIENT
  Age: 48 Year
  Sex: Female

DRUGS (2)
  1. WELLBUTRIN [Suspect]
     Indication: DEPRESSION
     Route: 048
     Dates: start: 20110728, end: 20110731
  2. WELLBUTRIN [Suspect]
     Indication: DEPRESSION
     Dosage: DF
     Route: 048
     Dates: start: 20120801

REACTIONS (11)
  - Anxiety [None]
  - Accidental overdose [None]
  - Dyspnoea [None]
  - Panic attack [None]
  - Fear of death [None]
  - Feeling abnormal [None]
  - Heart rate increased [None]
  - Fear [None]
  - Agitation [None]
  - Confusional state [None]
  - Staring [None]
